FAERS Safety Report 8214670-3 (Version None)
Quarter: 2012Q1

REPORT INFORMATION
  Report Type: 
  Country: None (occurrence: None)
  Receive Date: 20120316
  Receipt Date: 20120307
  Transmission Date: 20120608
  Serious: Yes (Death, Hospitalization, Other)
  Sender: FDA-Public Use
  Company Number: FR-EISAI INC-E7389-02145-SPO-FR

PATIENT
  Sex: Female
  Weight: 57 kg

DRUGS (5)
  1. SOLU-MEDROL [Suspect]
     Route: 042
     Dates: start: 20120202
  2. FLUCONAZOLE [Concomitant]
     Indication: CANDIDIASIS
     Route: 042
     Dates: start: 20120202
  3. HALAVEN [Suspect]
     Route: 041
     Dates: start: 20120223, end: 20120223
  4. NEXIUM [Concomitant]
     Indication: PROPHYLAXIS
     Route: 048
     Dates: start: 20120202
  5. ACETAMINOPHEN [Concomitant]
     Indication: PAIN
     Route: 042
     Dates: start: 20120202

REACTIONS (3)
  - MELAENA [None]
  - HAEMATEMESIS [None]
  - PLATELET COUNT DECREASED [None]
